FAERS Safety Report 7239442-8 (Version None)
Quarter: 2011Q1

REPORT INFORMATION
  Report Type: 
  Country: None (occurrence: None)
  Receive Date: 20110121
  Receipt Date: 20110114
  Transmission Date: 20110831
  Serious: Yes (Hospitalization, Other)
  Sender: FDA-Public Use
  Company Number: US-BAYER-2011-005887

PATIENT
  Age: 29 Year
  Sex: Female

DRUGS (1)
  1. MIRENA [Suspect]
     Indication: CONTRACEPTION
     Dosage: 20 A?G, CONT
     Route: 015
     Dates: end: 20110104

REACTIONS (3)
  - PELVIC PAIN [None]
  - PELVIC INFLAMMATORY DISEASE [None]
  - CHLAMYDIAL INFECTION [None]
